FAERS Safety Report 4909276-5 (Version None)
Quarter: 2006Q1

REPORT INFORMATION
  Report Type: 
  Country: None (occurrence: None)
  Receive Date: 20060213
  Receipt Date: 20060126
  Transmission Date: 20060701
  Serious: Yes (Other)
  Sender: FDA-Public Use
  Company Number: PHBS2006JP01604

PATIENT

DRUGS (6)
  1. TEGRETOL [Suspect]
     Indication: TRIGEMINAL NEURALGIA
     Dosage: 200 MG/DAY
     Route: 048
  2. LASIX [Concomitant]
     Dosage: 20 MG/DAY
     Route: 048
  3. FAMOTIDINE [Concomitant]
     Dosage: 4 DF/DAY
     Route: 048
  4. MUCODYNE [Concomitant]
     Dosage: 1500 MG/DAY
     Route: 048
  5. MAGMITT KENEI [Concomitant]
     Dosage: 990 MG/DAY
     Route: 048
  6. EURODIN [Concomitant]
     Dosage: 1 MG/DAY
     Route: 049

REACTIONS (1)
  - DELUSION [None]
